FAERS Safety Report 17611838 (Version 2)
Quarter: 2020Q2

REPORT INFORMATION
  Report Type: Spontaneous
  Country: US (occurrence: US)
  Receive Date: 20200401
  Receipt Date: 20200506
  Transmission Date: 20200713
  Serious: Yes (Other)
  Sender: FDA-Public Use
  Company Number: US-PFIZER INC-2020134365

PATIENT
  Age: 58 Year
  Sex: Female
  Weight: 66.68 kg

DRUGS (1)
  1. PHENYTOIN SODIUM. [Suspect]
     Active Substance: PHENYTOIN SODIUM
     Indication: SEIZURE
     Dosage: 100 MG, 3X/DAY
     Route: 048
     Dates: start: 20200323, end: 20200325

REACTIONS (4)
  - Drug ineffective [Recovering/Resolving]
  - Feeling abnormal [Recovered/Resolved]
  - Hallucination, visual [Unknown]
  - Dry mouth [Unknown]

NARRATIVE: CASE EVENT DATE: 202003
